FAERS Safety Report 8076178-8 (Version None)
Quarter: 2012Q1

REPORT INFORMATION
  Report Type: 
  Country: None (occurrence: None)
  Receive Date: 20120127
  Receipt Date: 20120120
  Transmission Date: 20120608
  Serious: Yes (Other)
  Sender: FDA-Public Use
  Company Number: DE-ROXANE LABORATORIES, INC.-2012-RO-00516RO

PATIENT
  Age: 61 Year
  Sex: Female

DRUGS (6)
  1. MESNA [Suspect]
  2. CYCLOPHOSPHAMIDE [Suspect]
     Indication: THYROID CANCER
  3. DEXAMETHASONE [Suspect]
     Indication: EVIDENCE BASED TREATMENT
     Route: 042
  4. VINCRISTINE [Suspect]
     Indication: THYROID CANCER
  5. DACARBAZINE [Suspect]
     Indication: THYROID CANCER
  6. GRANISETRON [Suspect]
     Indication: EVIDENCE BASED TREATMENT
     Route: 042

REACTIONS (6)
  - NAUSEA [None]
  - VOMITING [None]
  - HYPERHIDROSIS [None]
  - DIARRHOEA [None]
  - FATIGUE [None]
  - ALOPECIA [None]
